FAERS Safety Report 6781494 (Version 2)
Quarter: 2022Q2

REPORT INFORMATION
  Report Type: Spontaneous
  Country: PL (occurrence: PL)
  Receive Date: 20081007
  Receipt Date: 20220504
  Transmission Date: 20220721
  Serious: Yes (Death, Hospitalization)
  Sender: FDA-Public Use
  Company Number: PL-PFIZER INC-2008082976

PATIENT
  Age: 24 Year
  Sex: Female

DRUGS (5)
  1. DOXEPIN HYDROCHLORIDE [Suspect]
     Active Substance: DOXEPIN HYDROCHLORIDE
     Dosage: UNK
  2. VERAPAMIL HYDROCHLORIDE [Suspect]
     Active Substance: VERAPAMIL HYDROCHLORIDE
     Dosage: UNK
  3. MIANSERIN [Suspect]
     Active Substance: MIANSERIN
  4. BROMAZEPAM [Suspect]
     Active Substance: BROMAZEPAM
  5. KETOPROFEN [Suspect]
     Active Substance: KETOPROFEN

REACTIONS (1)
  - Overdose [Fatal]
